FAERS Safety Report 24636603 (Version 1)
Quarter: 2024Q4

REPORT INFORMATION
  Report Type: Spontaneous
  Country: JP (occurrence: JP)
  Receive Date: 20241119
  Receipt Date: 20241119
  Transmission Date: 20250115
  Serious: Yes (Other)
  Sender: AMGEN
  Company Number: JP-AMGEN-JPNSP2024225419

PATIENT
  Sex: Male

DRUGS (6)
  1. BLINCYTO [Suspect]
     Active Substance: BLINATUMOMAB
     Indication: Philadelphia chromosome positive
     Dosage: UNK, DRIP INFUSION
     Route: 040
  2. BLINCYTO [Suspect]
     Active Substance: BLINATUMOMAB
     Indication: Acute lymphocytic leukaemia
  3. PONATINIB [Concomitant]
     Active Substance: PONATINIB
     Indication: Philadelphia chromosome positive
  4. PONATINIB [Concomitant]
     Active Substance: PONATINIB
     Indication: Acute lymphocytic leukaemia
  5. CLOFARABINE [Concomitant]
     Active Substance: CLOFARABINE
     Indication: Philadelphia chromosome positive
  6. CLOFARABINE [Concomitant]
     Active Substance: CLOFARABINE
     Indication: Acute lymphocytic leukaemia

REACTIONS (2)
  - Stem cell transplant [Unknown]
  - Therapy non-responder [Unknown]
